FAERS Safety Report 9072197 (Version 1)
Quarter: 2013Q1

REPORT INFORMATION
  Report Type: Report from Study
  Country: US (occurrence: US)
  Receive Date: 20130128
  Receipt Date: 20130128
  Transmission Date: 20140127
  Serious: No
  Sender: FDA-Public Use
  Company Number: US-ABBOTT-12P-163-0917273-00

PATIENT
  Age: 61 Year
  Sex: Female

DRUGS (11)
  1. HUMIRA 40 MG/ 0.8 ML PRE-FILLED SYRINGE [Suspect]
     Indication: COLITIS ULCERATIVE
     Dates: start: 20120227, end: 20120227
  2. HUMIRA 40 MG/ 0.8 ML PRE-FILLED SYRINGE [Suspect]
     Dates: start: 20120312, end: 20120312
  3. HUMIRA 40 MG/ 0.8 ML PRE-FILLED SYRINGE [Suspect]
  4. ATENOLOL [Concomitant]
     Indication: BLOOD PRESSURE
  5. PLAVIX [Concomitant]
     Indication: THROMBOSIS
  6. TYLENOL OTC [Concomitant]
     Indication: PROCEDURAL PAIN
  7. DILAUDID (GENERIC) [Concomitant]
     Indication: PAIN MANAGEMENT
  8. IMODIUM AD [Concomitant]
     Indication: COLITIS
     Dosage: UP TO 4 DOSES, 1 IN 1 D, AS NEEDED
  9. ADVAIR [Concomitant]
     Indication: CHRONIC OBSTRUCTIVE PULMONARY DISEASE
     Dosage: 2.5, ONE PUFF QAM AND QPM
  10. COMBIVENT [Concomitant]
     Indication: ASTHMA
     Dosage: QAM AND QPM
  11. COMBIVENT [Concomitant]
     Indication: CHRONIC OBSTRUCTIVE PULMONARY DISEASE

REACTIONS (1)
  - Urinary tract infection [Not Recovered/Not Resolved]
